FAERS Safety Report 18623208 (Version 5)
Quarter: 2021Q1

REPORT INFORMATION
  Report Type: Report from Study
  Country: BE (occurrence: BE)
  Receive Date: 20201216
  Receipt Date: 20210308
  Transmission Date: 20210419
  Serious: Yes (Hospitalization, Other)
  Sender: FDA-Public Use
  Company Number: BE-PFIZER INC-2020492692

PATIENT
  Age: 64 Year
  Sex: Male
  Weight: 90 kg

DRUGS (10)
  1. METHOTREXATE SODIUM. [Suspect]
     Active Substance: METHOTREXATE SODIUM
     Dosage: 50.9 MG
     Route: 042
     Dates: start: 20201117, end: 20201117
  2. AVELUMAB [Suspect]
     Active Substance: AVELUMAB
     Indication: BLADDER TRANSITIONAL CELL CARCINOMA
     Dosage: 900 MG, CYCLIC (EVERY 2 WEEKS)
     Route: 042
     Dates: start: 20201007
  3. AVELUMAB [Suspect]
     Active Substance: AVELUMAB
     Dosage: 900 MG
     Route: 042
     Dates: start: 20201118, end: 20201118
  4. VINBLASTINE [Suspect]
     Active Substance: VINBLASTINE
     Dosage: 6.36 MG
     Route: 042
     Dates: start: 20201118, end: 20201118
  5. DOXORUBICIN HCL [Suspect]
     Active Substance: DOXORUBICIN HYDROCHLORIDE
     Dosage: 50.9 MG
     Route: 042
     Dates: start: 20201118, end: 20201118
  6. DOXORUBICIN HCL [Suspect]
     Active Substance: DOXORUBICIN HYDROCHLORIDE
     Indication: BLADDER TRANSITIONAL CELL CARCINOMA
     Dosage: 50.9 MG, CYCLIC (EVERY 2 WEEKS)
     Route: 042
     Dates: start: 20201007
  7. CISPLATIN. [Suspect]
     Active Substance: CISPLATIN
     Indication: BLADDER TRANSITIONAL CELL CARCINOMA
     Dosage: 148.4 MG, CYCLIC (EVERY 2 WEEKS)
     Route: 042
     Dates: start: 20201007
  8. CISPLATIN. [Suspect]
     Active Substance: CISPLATIN
     Dosage: 148.4 MG
     Route: 042
     Dates: start: 20201118, end: 20201118
  9. METHOTREXATE SODIUM. [Suspect]
     Active Substance: METHOTREXATE SODIUM
     Indication: BLADDER TRANSITIONAL CELL CARCINOMA
     Dosage: 50.9 MG, CYCLIC (EVERY 2 WEEKS)
     Route: 042
     Dates: start: 20201006
  10. VINBLASTINE [Suspect]
     Active Substance: VINBLASTINE
     Indication: BLADDER TRANSITIONAL CELL CARCINOMA
     Dosage: 6.36 MG, CYCLIC (EVERY 2 WEEKS)
     Route: 042
     Dates: start: 20201007

REACTIONS (2)
  - Acute kidney injury [Recovered/Resolved]
  - COVID-19 [Recovered/Resolved]

NARRATIVE: CASE EVENT DATE: 20201202
